FAERS Safety Report 7302495-2 (Version None)
Quarter: 2011Q1

REPORT INFORMATION
  Report Type: 
  Country: None (occurrence: None)
  Receive Date: 20110218
  Receipt Date: 20110215
  Transmission Date: 20110831
  Serious: No
  Sender: FDA-Public Use
  Company Number: US-PFIZER INC-2010177962

PATIENT
  Sex: Male
  Weight: 97.506 kg

DRUGS (2)
  1. HYDROCHLOROTHIAZIDE [Concomitant]
     Indication: HYPERTENSION
     Dosage: 25 MG, DAILY
  2. CHANTIX [Suspect]
     Indication: SMOKING CESSATION THERAPY
     Dosage: 0.5 MG, 1X/DAY
     Route: 048
     Dates: start: 20101218

REACTIONS (4)
  - ERECTILE DYSFUNCTION [None]
  - HYPERTENSION [None]
  - ABNORMAL DREAMS [None]
  - SEXUAL DYSFUNCTION [None]
